FAERS Safety Report 7075378-3 (Version None)
Quarter: 2010Q4

REPORT INFORMATION
  Report Type: 
  Country: None (occurrence: None)
  Receive Date: 20101030
  Receipt Date: 20100830
  Transmission Date: 20110411
  Serious: No
  Sender: FDA-Public Use
  Company Number: US-WYE-H17276210

PATIENT
  Sex: Female
  Weight: 59.02 kg

DRUGS (13)
  1. PRISTIQ [Suspect]
     Indication: DEPRESSION
     Route: 048
     Dates: start: 20100701
  2. ALLEGRA [Concomitant]
  3. PULMICORT [Concomitant]
  4. MAXAIR [Concomitant]
  5. IMODIUM [Concomitant]
  6. ACETAMINOPHEN [Concomitant]
  7. LACTOBACILLUS ACIDOPHILUS [Concomitant]
  8. CALCIUM/VITAMIN D [Concomitant]
  9. ERGOCALCIFEROL [Concomitant]
  10. HYDROCODONE [Concomitant]
  11. XANAX [Concomitant]
  12. SYNTHROID [Concomitant]
  13. BEANO [Concomitant]

REACTIONS (9)
  - ABDOMINAL PAIN UPPER [None]
  - ANXIETY [None]
  - CONDITION AGGRAVATED [None]
  - CONFUSIONAL STATE [None]
  - DIARRHOEA [None]
  - DRY MOUTH [None]
  - IRRITABILITY [None]
  - MUSCULOSKELETAL STIFFNESS [None]
  - STRESS [None]
